FAERS Safety Report 7549296-8 (Version None)
Quarter: 2011Q2

REPORT INFORMATION
  Report Type: 
  Country: None (occurrence: None)
  Receive Date: 20110615
  Receipt Date: 20010810
  Transmission Date: 20111010
  Serious: Yes (Hospitalization)
  Sender: FDA-Public Use
  Company Number: PHEH2001US06835

PATIENT
  Sex: Male

DRUGS (2)
  1. GLUCOTROL [Concomitant]
  2. EXELON [Suspect]
     Indication: DEMENTIA ALZHEIMER'S TYPE
     Dosage: 3 MG, BID
     Dates: start: 20010425

REACTIONS (4)
  - OEDEMA PERIPHERAL [None]
  - ABDOMINAL PAIN [None]
  - CHEST PAIN [None]
  - CARDIAC FAILURE CONGESTIVE [None]
